FAERS Safety Report 7482959-1 (Version None)
Quarter: 2011Q2

REPORT INFORMATION
  Report Type: 
  Country: None (occurrence: None)
  Receive Date: 20110516
  Receipt Date: 20110329
  Transmission Date: 20111010
  Serious: No
  Sender: FDA-Public Use
  Company Number: US-BAYER-2011-028823

PATIENT
  Sex: Male
  Weight: 109 kg

DRUGS (4)
  1. ALEVE (CAPLET) [Suspect]
     Indication: PAIN
     Dosage: BOTTLE COUNT 100S
     Route: 048
  2. ANTIHYPERTENSIVES [Concomitant]
     Route: 048
  3. DRUG USED IN DIABETES [Concomitant]
     Route: 048
  4. GOUT MEDICATION [Concomitant]
     Route: 048

REACTIONS (1)
  - NO ADVERSE EVENT [None]
